FAERS Safety Report 9832511 (Version 2)
Quarter: 2014Q1

REPORT INFORMATION
  Report Type: Spontaneous
  Country: US (occurrence: US)
  Receive Date: 20140121
  Receipt Date: 20140124
  Transmission Date: 20141002
  Serious: Yes (Hospitalization, Other)
  Sender: FDA-Public Use
  Company Number: US-PFIZER INC-2014017227

PATIENT
  Age: 55 Year
  Sex: Male

DRUGS (1)
  1. DEPO-TESTOSTERONE [Suspect]
     Indication: ANDROGEN DEFICIENCY
     Dosage: 1 ML, UNK
     Dates: start: 2013

REACTIONS (4)
  - Product contamination [Unknown]
  - Suspected transmission of an infectious agent via product [Unknown]
  - Injection site infection [Unknown]
  - Injection site necrosis [Unknown]
